FAERS Safety Report 15526658 (Version 6)
Quarter: 2019Q1

REPORT INFORMATION
  Report Type: Spontaneous
  Country: GB (occurrence: GB)
  Receive Date: 20181018
  Receipt Date: 20190305
  Transmission Date: 20190417
  Serious: Yes (Hospitalization, Other)
  Sender: FDA-Public Use
  Company Number: GB-ENDO PHARMACEUTICALS INC-2018-042113

PATIENT
  Age: 43 Year
  Sex: Male
  Weight: 132 kg

DRUGS (9)
  1. CANNABIDIOL [Concomitant]
     Active Substance: CANNABIDIOL
     Indication: PRODUCT USED FOR UNKNOWN INDICATION
     Dosage: UNK UNKNOWN, UNKNOWN
     Route: 065
  2. ZOMORPH [Concomitant]
     Active Substance: MORPHINE SULFATE
     Indication: PRODUCT USED FOR UNKNOWN INDICATION
     Dosage: UNK UNKNOWN, UNKNOWN
     Route: 065
  3. MATRIFEN [Concomitant]
     Active Substance: FENTANYL
     Indication: PRODUCT USED FOR UNKNOWN INDICATION
     Dosage: UNK UNKNOWN, UNKNOWN
     Route: 065
  4. AVEED [Suspect]
     Active Substance: TESTOSTERONE UNDECANOATE
     Indication: BLOOD TESTOSTERONE DECREASED
     Dosage: 1000 MG, EVERY 3 MONTHS, TOTAL OF 11 INJECTIONS (RIGHT UPPER OF QUADRANT BUTTOCK)
     Route: 030
     Dates: start: 201702, end: 20180921
  5. CITALOPRAM [Concomitant]
     Active Substance: CITALOPRAM HYDROBROMIDE
     Indication: PRODUCT USED FOR UNKNOWN INDICATION
     Dosage: UNK UNKNOWN, UNKNOWN
     Route: 065
  6. AVEED [Suspect]
     Active Substance: TESTOSTERONE UNDECANOATE
     Indication: HYPOGONADISM MALE
  7. DICLOFENAC [Concomitant]
     Active Substance: DICLOFENAC
     Indication: PRODUCT USED FOR UNKNOWN INDICATION
     Dosage: UNK UNKNOWN, UNKNOWN
     Route: 065
  8. OMEPRAZOLE. [Concomitant]
     Active Substance: OMEPRAZOLE
     Indication: PRODUCT USED FOR UNKNOWN INDICATION
     Dosage: UNK UNKNOWN, UNKNOWN
     Route: 065
  9. FENTANYL. [Concomitant]
     Active Substance: FENTANYL
     Indication: PRODUCT USED FOR UNKNOWN INDICATION
     Dosage: UNK UNKNOWN, UNKNOWN
     Route: 065

REACTIONS (22)
  - Hypoaesthesia [Unknown]
  - Tongue discomfort [Recovered/Resolved]
  - Swelling [Unknown]
  - Incorrect route of product administration [Unknown]
  - Hot flush [Recovered/Resolved]
  - Chest pain [Recovered/Resolved]
  - Erythema [Unknown]
  - Burning sensation [Unknown]
  - Paraesthesia oral [Recovered/Resolved]
  - Oxygen saturation decreased [Recovered/Resolved]
  - Rales [Recovered/Resolved]
  - Crepitations [Recovered/Resolved]
  - Malaise [Unknown]
  - Dizziness [Unknown]
  - Feeling hot [Unknown]
  - Anaphylactic reaction [Recovered/Resolved]
  - Wheezing [Recovered/Resolved]
  - Papule [Unknown]
  - Cough [Unknown]
  - Dyspnoea [Recovered/Resolved]
  - Chest discomfort [Recovered/Resolved]
  - Paraesthesia [Recovered/Resolved]

NARRATIVE: CASE EVENT DATE: 20180921
